FAERS Safety Report 8883338 (Version 1)
Quarter: 2012Q4

REPORT INFORMATION
  Report Type: Report from Study
  Country: US (occurrence: US)
  Receive Date: 20121102
  Receipt Date: 20121102
  Transmission Date: 20130627
  Serious: Yes (Other)
  Sender: FDA-Public Use
  Company Number: US-JNJFOC-20121016684

PATIENT
  Age: 49 None
  Sex: Female
  Weight: 68.04 kg

DRUGS (10)
  1. REMICADE [Suspect]
     Indication: ANKYLOSING SPONDYLITIS
     Route: 042
     Dates: start: 2012
  2. REMICADE [Suspect]
     Indication: RHEUMATOID ARTHRITIS
     Route: 042
     Dates: start: 2012
  3. UNKNOWN MEDICATION [Suspect]
     Indication: PAIN
     Route: 042
     Dates: start: 20121012, end: 20121012
  4. FLU SHOT [Suspect]
     Indication: PRODUCT USED FOR UNKNOWN INDICATION
     Route: 065
     Dates: start: 201210, end: 201210
  5. FENTANYL [Concomitant]
     Indication: PAIN
     Route: 065
     Dates: start: 2003
  6. NEURONTIN [Concomitant]
     Indication: RADICULOPATHY
     Route: 065
     Dates: start: 2005
  7. NEURONTIN [Concomitant]
     Indication: NEUROPATHY PERIPHERAL
     Route: 065
     Dates: start: 2005
  8. CYMBALTA [Concomitant]
     Indication: RADICULOPATHY
     Route: 065
     Dates: start: 2005
  9. CYMBALTA [Concomitant]
     Indication: NEUROPATHY PERIPHERAL
     Route: 065
     Dates: start: 2005
  10. METHOTREXATE [Concomitant]
     Route: 048

REACTIONS (4)
  - Arthralgia [Recovered/Resolved]
  - Adverse drug reaction [Recovered/Resolved]
  - Drug ineffective [Not Recovered/Not Resolved]
  - Muscle tightness [Recovered/Resolved]
